FAERS Safety Report 9197095 (Version 2)
Quarter: 2013Q2

REPORT INFORMATION
  Report Type: Spontaneous
  Country: US (occurrence: US)
  Receive Date: 20130328
  Receipt Date: 20130522
  Transmission Date: 20140414
  Serious: Yes (Hospitalization)
  Sender: FDA-Public Use
  Company Number: US-JNJFOC-20130311994

PATIENT
  Age: 75 Year
  Sex: Female
  Weight: 81.7 kg

DRUGS (2)
  1. XARELTO [Suspect]
     Indication: KNEE ARTHROPLASTY
     Dosage: 10:30AM
     Route: 048
     Dates: start: 20121030, end: 20121031
  2. XARELTO [Suspect]
     Indication: THROMBOSIS PROPHYLAXIS
     Dosage: 10:30AM
     Route: 048
     Dates: start: 20121030, end: 20121031

REACTIONS (1)
  - Pulmonary embolism [Recovering/Resolving]
